FAERS Safety Report 9090530 (Version 1)
Quarter: 2013Q1

REPORT INFORMATION
  Report Type: Spontaneous
  Country: US (occurrence: US)
  Receive Date: 20130131
  Receipt Date: 20130131
  Transmission Date: 20140127
  Serious: No
  Sender: FDA-Public Use
  Company Number: US-ABBOTT-12P-163-1022603-00

PATIENT
  Age: 60 Year
  Sex: Male
  Weight: 90.8 kg

DRUGS (5)
  1. HUMIRA [Suspect]
     Indication: RHEUMATOID ARTHRITIS
     Dates: start: 20121130
  2. LEVOTHYROXINE [Concomitant]
     Indication: THYROID DISORDER
  3. TRAMADOL [Concomitant]
     Indication: HEADACHE
  4. PAROXETINE [Concomitant]
     Indication: DEPRESSION
  5. CLONAZEPAM [Concomitant]
     Indication: ANXIETY

REACTIONS (1)
  - Hepatic pain [Recovered/Resolved]
